FAERS Safety Report 23357900 (Version 1)
Quarter: 2024Q1

REPORT INFORMATION
  Report Type: Other
  Country: US (occurrence: None)
  Receive Date: 20240102
  Receipt Date: 20240102
  Transmission Date: 20240410
  Serious: Yes (Other)
  Sender: FDA-Public Use
  Company Number: US-Nivagen-000077

PATIENT
  Age: 45 Year
  Sex: Female

DRUGS (6)
  1. TEMOZOLOMIDE [Suspect]
     Active Substance: TEMOZOLOMIDE
     Indication: Disease recurrence
     Dosage: 50 MG/M(2),QD (ONCE A DAY)
  2. OLAPARIB [Suspect]
     Active Substance: OLAPARIB
     Indication: Disease recurrence
     Dosage: 150 MG 3 X /WK
  3. BEVACIZUMAB [Concomitant]
     Active Substance: BEVACIZUMAB
     Indication: Disease recurrence
  4. TEMOZOLOMIDE [Suspect]
     Active Substance: TEMOZOLOMIDE
     Indication: Oligodendroglioma
     Dosage: 50 MG/M(2), QD (ONCE A DAY)
  5. OLAPARIB [Suspect]
     Active Substance: OLAPARIB
     Indication: Oligodendroglioma
     Dosage: 150 3 X /WK
  6. BEVACIZUMAB [Concomitant]
     Active Substance: BEVACIZUMAB
     Indication: Oligodendroglioma

REACTIONS (5)
  - Oligodendroglioma [Unknown]
  - Disease progression [Unknown]
  - Constipation [Unknown]
  - Fatigue [Unknown]
  - Nausea [Unknown]
